FAERS Safety Report 5800276-X (Version None)
Quarter: 2008Q3

REPORT INFORMATION
  Report Type: 
  Country: None (occurrence: None)
  Receive Date: 20080703
  Receipt Date: 20080701
  Transmission Date: 20090109
  Serious: Yes (Death, Other)
  Sender: FDA-Public Use
  Company Number: PHEH2008US05425

PATIENT
  Sex: Male

DRUGS (4)
  1. EXJADE [Suspect]
  2. DESFERAL [Suspect]
     Dosage: 1 UNIT PER UNIT OF BLOOD
     Dates: start: 20070201
  3. DESFERAL [Suspect]
     Dosage: 1 SHOT DAILY
     Dates: start: 20080201
  4. BLOOD TRANSFUSION, AUXILIARY PRODUCTS [Concomitant]
     Dosage: UNK
     Dates: start: 20070201

REACTIONS (2)
  - DEATH [None]
  - HYPERSENSITIVITY [None]
